FAERS Safety Report 19721862 (Version 1)
Quarter: 2021Q3

REPORT INFORMATION
  Report Type: Report from Study
  Country: US (occurrence: US)
  Receive Date: 20210819
  Receipt Date: 20210819
  Transmission Date: 20211014
  Serious: Yes (Other)
  Sender: FDA-Public Use
  Company Number: US-MYLANLABS-2021M1053059

PATIENT

DRUGS (2)
  1. DOXORUBICIN [Suspect]
     Active Substance: DOXORUBICIN
     Indication: SOFT TISSUE SARCOMA
     Dosage: 75 MILLIGRAM/SQ. METER, CYCLE
     Route: 042
  2. TAZEMETOSTAT [Suspect]
     Active Substance: TAZEMETOSTAT
     Indication: SOFT TISSUE SARCOMA
     Dosage: 600 MILLIGRAM, BID
     Route: 048

REACTIONS (1)
  - Febrile neutropenia [Unknown]
